FAERS Safety Report 21036979 (Version 1)
Quarter: 2022Q3

REPORT INFORMATION
  Report Type: Spontaneous
  Country: FR (occurrence: FR)
  Receive Date: 20220702
  Receipt Date: 20220702
  Transmission Date: 20221026
  Serious: Yes (Hospitalization)
  Sender: FDA-Public Use
  Company Number: None

PATIENT
  Age: 78 Year
  Sex: Male
  Weight: 45.6 kg

DRUGS (8)
  1. ALLOPURINOL [Suspect]
     Active Substance: ALLOPURINOL
     Indication: Hyperuricaemia
     Dosage: 100 MG, QD
     Route: 065
     Dates: start: 202108, end: 20220117
  2. ALLOPURINOL [Suspect]
     Active Substance: ALLOPURINOL
     Dosage: 200 MG, QD
     Route: 065
     Dates: start: 20220117, end: 20220316
  3. LERCANIDIPINE [Concomitant]
     Active Substance: LERCANIDIPINE
     Indication: Hypertension
     Dosage: 1 DOSAGE FORM, QD
     Route: 065
  4. OMEPRAZOLE [Concomitant]
     Active Substance: OMEPRAZOLE
     Indication: Product used for unknown indication
     Dosage: 1 DOSAGE FORM, QD (AU LONG COURS)
     Route: 065
     Dates: end: 20220316
  5. BISOPROLOL FUMARATE [Concomitant]
     Active Substance: BISOPROLOL FUMARATE
     Indication: Hypertension
     Dosage: 2.5 MG, QD
     Route: 065
  6. SIMVASTATIN [Concomitant]
     Active Substance: SIMVASTATIN
     Indication: Dyslipidaemia
     Dosage: 1 DOSAGE FORM, QD (AU LONG COURS)
     Route: 065
     Dates: end: 20220316
  7. PHLOROGLUCINOL [Concomitant]
     Active Substance: PHLOROGLUCINOL
     Indication: Product used for unknown indication
     Dosage: UNK (AU LONG COURS)
     Route: 065
     Dates: end: 20220316
  8. ALDACTAZINE [Concomitant]
     Active Substance: ALTHIAZIDE\SPIRONOLACTONE
     Indication: Hypertension
     Dosage: 1 DOSAGE FORM, QD (AU LONG COURS)
     Route: 065
     Dates: end: 20220316

REACTIONS (1)
  - Pemphigoid [Recovering/Resolving]

NARRATIVE: CASE EVENT DATE: 20220131
